FAERS Safety Report 5571241-5 (Version None)
Quarter: 2007Q4

REPORT INFORMATION
  Report Type: 
  Country: None (occurrence: None)
  Receive Date: 20071221
  Receipt Date: 20070611
  Transmission Date: 20080405
  Serious: No
  Sender: FDA-Public Use
  Company Number: A0643649A

PATIENT
  Age: 86 Year
  Sex: Male
  Weight: 77.3 kg

DRUGS (2)
  1. FLUTICASONE PROPIONATE [Suspect]
     Indication: NASAL CONGESTION
     Dosage: 2SPR AT NIGHT
     Route: 045
     Dates: start: 20070220
  2. MEDICATION FOR HIGH BLOOD PRESSURE [Concomitant]

REACTIONS (3)
  - BLOOD PRESSURE INCREASED [None]
  - DRUG EFFECT DECREASED [None]
  - PHARMACEUTICAL PRODUCT COMPLAINT [None]
